FAERS Safety Report 5493732-8 (Version None)
Quarter: 2007Q4

REPORT INFORMATION
  Report Type: 
  Country: None (occurrence: None)
  Receive Date: 20071015
  Receipt Date: 20070908
  Transmission Date: 20080405
  Serious: No
  Sender: FDA-Public Use
  Company Number: 2007SP003132

PATIENT
  Age: 57 Year
  Sex: Male

DRUGS (4)
  1. LUNESTA [Suspect]
     Indication: INSOMNIA
     Dosage: ORAL
     Route: 048
  2. OXYCONTIN [Concomitant]
  3. LYRICA [Concomitant]
  4. DEMEROL [Concomitant]

REACTIONS (1)
  - PARAESTHESIA [None]
